FAERS Safety Report 22233401 (Version 2)
Quarter: 2023Q2

REPORT INFORMATION
  Report Type: Spontaneous
  Country: US (occurrence: None)
  Receive Date: 20230420
  Receipt Date: 20230421
  Transmission Date: 20230721
  Serious: No
  Sender: FDA-Public Use
  Company Number: US-ROCHE-3328487

PATIENT

DRUGS (6)
  1. OCREVUS [Suspect]
     Active Substance: OCRELIZUMAB
     Indication: Multiple sclerosis
     Route: 065
  2. COPAXONE [Concomitant]
     Active Substance: GLATIRAMER ACETATE
  3. GILENYA [Concomitant]
     Active Substance: FINGOLIMOD HYDROCHLORIDE
  4. REBIF [Concomitant]
     Active Substance: INTERFERON BETA-1A
  5. TYSABRI [Concomitant]
     Active Substance: NATALIZUMAB
  6. AVONEX [Concomitant]
     Active Substance: INTERFERON BETA-1A

REACTIONS (2)
  - Drug ineffective [Unknown]
  - No adverse event [Unknown]

NARRATIVE: CASE EVENT DATE: 20230408
